FAERS Safety Report 10395230 (Version 2)
Quarter: 2014Q1

REPORT INFORMATION
  Report Type: Spontaneous
  Country: US (occurrence: None)
  Receive Date: 20120913
  Receipt Date: 20131226
  Transmission Date: 20141002
  Serious: Yes (Other)
  Sender: FDA-Public Use
  Company Number: PHHY2010US63247

PATIENT
  Age: 56 Year
  Sex: Female
  Weight: 58.5 kg

DRUGS (10)
  1. EXTAVIA (INTERFERON BETA-1B) [Suspect]
     Indication: MULTIPLE SCLEROSIS
     Route: 058
     Dates: start: 20100920
  2. FLUOXETIN (FLUOXETINE HYDROCHLORIDE) [Concomitant]
  3. CALCIUM [Concomitant]
  4. CALCIUM MAGNESIUM ZINC CAPSULE [Concomitant]
  5. NIACIN (NICOTINIC ACID) [Concomitant]
  6. COQ10 (UBIDECARENONE) [Concomitant]
  7. RECLAST (ZOLEDRONIC ACID) [Concomitant]
  8. BURDOCK PILL (EXCEPT TABLETS) [Concomitant]
  9. VITAMIN D3 (COLECALCIFEROL) [Concomitant]
  10. GARLIC (ALLIUM SATIVUM) PILL (EXCEPT TABLETS) [Concomitant]

REACTIONS (10)
  - Depression [None]
  - Influenza [None]
  - Diarrhoea [None]
  - Injection site haemorrhage [None]
  - Abdominal pain upper [None]
  - Injection site erythema [None]
  - Injection site swelling [None]
  - Injection site pain [None]
  - Vomiting [None]
  - Injection site bruising [None]
